FAERS Safety Report 5224334-6 (Version None)
Quarter: 2007Q1

REPORT INFORMATION
  Report Type: 
  Country: None (occurrence: None)
  Receive Date: 20070130
  Receipt Date: 20070129
  Transmission Date: 20070707
  Serious: Yes (Life-Threatening)
  Sender: FDA-Public Use
  Company Number: SI-BOEHRINGER INGELHEIM PHARMACEUTICALS, INC.-2007-AP-00047AP

PATIENT
  Age: 70 Year
  Sex: Male

DRUGS (2)
  1. ASASANTIN RETARD [Suspect]
     Indication: TRANSIENT ISCHAEMIC ATTACK
     Dosage: 200/25 MG
     Route: 048
  2. ASPIRIN [Concomitant]

REACTIONS (1)
  - ANGIOEDEMA [None]
